FAERS Safety Report 24946868 (Version 1)
Quarter: 2025Q1

REPORT INFORMATION
  Report Type: Spontaneous
  Country: US (occurrence: US)
  Receive Date: 20250210
  Receipt Date: 20250210
  Transmission Date: 20250409
  Serious: Yes (Hospitalization, Other)
  Sender: SANOFI AVENTIS
  Company Number: US-SA-2025SA036260

PATIENT
  Age: 79 Year
  Sex: Male

DRUGS (3)
  1. DUPIXENT [Suspect]
     Active Substance: DUPILUMAB
     Indication: Asthma
     Dosage: 300 MG, QOW
     Route: 058
     Dates: start: 202201
  2. REVLIMID [Concomitant]
     Active Substance: LENALIDOMIDE
     Dosage: 1 UNK, QD
     Route: 048
  3. XARELTO [Concomitant]
     Active Substance: RIVAROXABAN

REACTIONS (7)
  - Plasma cell myeloma [Not Recovered/Not Resolved]
  - Thrombosis [Unknown]
  - Pulmonary thrombosis [Unknown]
  - Hypoxia [Unknown]
  - Peripheral swelling [Unknown]
  - Constipation [Recovering/Resolving]
  - Asthenia [Recovering/Resolving]

NARRATIVE: CASE EVENT DATE: 20250128
